FAERS Safety Report 14787214 (Version 5)
Quarter: 2018Q3

REPORT INFORMATION
  Report Type: Spontaneous
  Country: US (occurrence: US)
  Receive Date: 20180421
  Receipt Date: 20180808
  Transmission Date: 20181010
  Serious: No
  Sender: FDA-Public Use
  Company Number: US-VIFOR (INTERNATIONAL) INC.-VIT-2018-03709

PATIENT
  Sex: Male

DRUGS (15)
  1. VELTASSA [Suspect]
     Active Substance: PATIROMER
     Indication: HYPERKALAEMIA
     Route: 048
     Dates: start: 20180403
  2. LASIX [Concomitant]
     Active Substance: FUROSEMIDE
  3. PARACETAMOL~~OXYCODONE HYDROCHLORIDE [Concomitant]
  4. VELTASSA [Suspect]
     Active Substance: PATIROMER
     Dates: start: 20180313
  5. GLIMEPIRIDE. [Concomitant]
     Active Substance: GLIMEPIRIDE
  6. VELTASSA [Suspect]
     Active Substance: PATIROMER
     Dates: start: 2018, end: 2018
  7. ACETYLSALICYLIC ACID [Concomitant]
     Active Substance: ASPIRIN
  8. ATORVASTATIN CALCIUM. [Concomitant]
     Active Substance: ATORVASTATIN CALCIUM
  9. CARVEDILOL. [Concomitant]
     Active Substance: CARVEDILOL
  10. COLECALCIFEROL~~CALCIUM CITRATE [Concomitant]
  11. FLONASE [Concomitant]
     Active Substance: FLUTICASONE PROPIONATE
  12. FOLIC ACID. [Concomitant]
     Active Substance: FOLIC ACID
  13. LOSARTAN POTASSIUM. [Concomitant]
     Active Substance: LOSARTAN POTASSIUM
  14. METHOTREXATE. [Concomitant]
     Active Substance: METHOTREXATE
  15. COLECALCIFEROL [Concomitant]
     Active Substance: CHOLECALCIFEROL

REACTIONS (4)
  - Oedema peripheral [Unknown]
  - Joint swelling [Unknown]
  - Inappropriate schedule of drug administration [Unknown]
  - Dyspnoea [Unknown]

NARRATIVE: CASE EVENT DATE: 2018
